FAERS Safety Report 8032221-3 (Version None)
Quarter: 2012Q1

REPORT INFORMATION
  Report Type: 
  Country: None (occurrence: None)
  Receive Date: 20120110
  Receipt Date: 20120103
  Transmission Date: 20120608
  Serious: No
  Sender: FDA-Public Use
  Company Number: US-BIOGENIDEC-2011BI017980

PATIENT
  Age: 34 Year
  Sex: Female

DRUGS (4)
  1. IV STEROIDS [Concomitant]
     Indication: VISION BLURRED
     Dates: start: 20110301
  2. TYSABRI [Suspect]
     Indication: RELAPSING-REMITTING MULTIPLE SCLEROSIS
     Route: 042
     Dates: start: 20110419
  3. IV STEROIDS [Concomitant]
     Indication: DIPLOPIA
     Dates: start: 20110301
  4. NEXIUM [Concomitant]
     Indication: HIATUS HERNIA

REACTIONS (24)
  - VISUAL IMPAIRMENT [None]
  - BACK PAIN [None]
  - POLLAKIURIA [None]
  - CHILLS [None]
  - INSOMNIA [None]
  - MEMORY IMPAIRMENT [None]
  - FATIGUE [None]
  - VISION BLURRED [None]
  - BLOOD URINE PRESENT [None]
  - SPEECH DISORDER [None]
  - HEADACHE [None]
  - PAIN IN EXTREMITY [None]
  - FEELING OF BODY TEMPERATURE CHANGE [None]
  - MUSCULOSKELETAL STIFFNESS [None]
  - ARTHRALGIA [None]
  - DEPRESSION [None]
  - VITAMIN D DECREASED [None]
  - MUSCLE SPASMS [None]
  - VOMITING [None]
  - ABDOMINAL PAIN UPPER [None]
  - GAIT DISTURBANCE [None]
  - BODY TEMPERATURE INCREASED [None]
  - CHROMATURIA [None]
  - DIPLOPIA [None]
